FAERS Safety Report 6752502-0 (Version None)
Quarter: 2010Q2

REPORT INFORMATION
  Report Type: 
  Country: None (occurrence: None)
  Receive Date: 20100602
  Receipt Date: 20100524
  Transmission Date: 20101027
  Serious: Yes (Hospitalization)
  Sender: FDA-Public Use
  Company Number: US-AMGEN-KDL414134

PATIENT
  Sex: Female

DRUGS (2)
  1. ENBREL [Suspect]
     Indication: RHEUMATOID ARTHRITIS
     Route: 058
  2. UNSPECIFIED NON-STEROIDAL ANTI-INFLAMMATORY AGENT [Concomitant]

REACTIONS (6)
  - ACUTE HEPATIC FAILURE [None]
  - ASTHENIA [None]
  - FATIGUE [None]
  - GALLBLADDER DISORDER [None]
  - RENAL FAILURE ACUTE [None]
  - RHEUMATOID ARTHRITIS [None]
